FAERS Safety Report 25321849 (Version 2)
Quarter: 2025Q3

REPORT INFORMATION
  Report Type: Spontaneous
  Country: LY (occurrence: LY)
  Receive Date: 20250516
  Receipt Date: 20250707
  Transmission Date: 20251020
  Serious: Yes (Death, Other)
  Sender: SANOFI AVENTIS
  Company Number: LY-SA-2025SA139675

PATIENT
  Age: 6 Year
  Sex: Male

DRUGS (1)
  1. CEREZYME [Suspect]
     Active Substance: IMIGLUCERASE
     Indication: Gaucher^s disease
     Route: 065

REACTIONS (6)
  - Intellectual disability [Fatal]
  - Dilated cardiomyopathy [Fatal]
  - Pneumonia [Fatal]
  - Pleural effusion [Fatal]
  - Hepatosplenomegaly [Fatal]
  - Atonic seizures [Fatal]
